FAERS Safety Report 19367669 (Version 1)
Quarter: 2021Q2

REPORT INFORMATION
  Report Type: Spontaneous
  Country: GB (occurrence: GB)
  Receive Date: 20210603
  Receipt Date: 20210603
  Transmission Date: 20210717
  Serious: Yes (Disabling)
  Sender: FDA-Public Use
  Company Number: GB-PFIZER INC-2021588365

PATIENT
  Age: 24 Year
  Sex: Male

DRUGS (2)
  1. SERTRALINE HCL [Suspect]
     Active Substance: SERTRALINE HYDROCHLORIDE
     Indication: ANTIDEPRESSANT THERAPY
     Dosage: 50 MG INITIALLY THEN 100MG
     Route: 048
     Dates: start: 2014
  2. SERTRALINE HCL [Suspect]
     Active Substance: SERTRALINE HYDROCHLORIDE
     Dosage: 100 MG
     Route: 048

REACTIONS (7)
  - Suicidal ideation [Unknown]
  - Psychotic disorder [Unknown]
  - Tachyphrenia [Unknown]
  - Aggression [Unknown]
  - Intrusive thoughts [Unknown]
  - Agitation [Unknown]
  - Homicidal ideation [Unknown]
